FAERS Safety Report 6869095-X (Version None)
Quarter: 2010Q3

REPORT INFORMATION
  Report Type: 
  Country: None (occurrence: None)
  Receive Date: 20100722
  Receipt Date: 20080804
  Transmission Date: 20110219
  Serious: No
  Sender: FDA-Public Use
  Company Number: US-PFIZER INC-2008058284

PATIENT
  Sex: Male
  Weight: 61.4 kg

DRUGS (8)
  1. CHANTIX [Suspect]
     Indication: SMOKING CESSATION THERAPY
     Dates: start: 20070101, end: 20080701
  2. BUPROPION [Concomitant]
  3. CILOSTAZOL [Concomitant]
  4. METFORMIN [Concomitant]
  5. LISINOPRIL [Concomitant]
     Indication: HYPERTENSION
  6. GLYBURIDE [Concomitant]
  7. LEXAPRO [Concomitant]
  8. PLAVIX [Concomitant]

REACTIONS (2)
  - DIARRHOEA [None]
  - WEIGHT DECREASED [None]
